FAERS Safety Report 17879955 (Version 1)
Quarter: 2020Q2

REPORT INFORMATION
  Report Type: Spontaneous
  Country: US (occurrence: US)
  Receive Date: 20200610
  Receipt Date: 20200610
  Transmission Date: 20200714
  Serious: No
  Sender: FDA-Public Use
  Company Number: US-ASTRAZENECA-2020SE70369

PATIENT
  Age: 23131 Day
  Sex: Female
  Weight: 59 kg

DRUGS (1)
  1. LYNPARZA [Suspect]
     Active Substance: OLAPARIB
     Indication: OVARIAN CANCER
     Dosage: TWO TIMES A DAY
     Route: 048
     Dates: start: 2020, end: 20200528

REACTIONS (1)
  - Renal function test abnormal [Unknown]

NARRATIVE: CASE EVENT DATE: 20200528
